FAERS Safety Report 22293725 (Version 1)
Quarter: 2023Q2

REPORT INFORMATION
  Report Type: Spontaneous
  Country: US (occurrence: None)
  Receive Date: 20230504
  Receipt Date: 20230504
  Transmission Date: 20230721
  Serious: Yes (Other)
  Sender: FDA-Public Use
  Company Number: None

PATIENT
  Age: 34 Year
  Sex: Female
  Weight: 43.09 kg

DRUGS (1)
  1. DOTAREM [Suspect]
     Active Substance: GADOTERATE MEGLUMINE

REACTIONS (5)
  - Asthenia [None]
  - Brain fog [None]
  - Fatigue [None]
  - Fatigue [None]
  - Bone disorder [None]

NARRATIVE: CASE EVENT DATE: 20230421
